FAERS Safety Report 9599157 (Version 1)
Quarter: 2013Q4

REPORT INFORMATION
  Report Type: Spontaneous
  Country: US (occurrence: US)
  Receive Date: 20131004
  Receipt Date: 20131004
  Transmission Date: 20140711
  Serious: No
  Sender: FDA-Public Use
  Company Number: US-AMGEN-USASP2013027541

PATIENT
  Age: 59 Year
  Sex: Male
  Weight: 70.3 kg

DRUGS (6)
  1. ENBREL [Suspect]
     Indication: PRODUCT USED FOR UNKNOWN INDICATION
     Dosage: 50 MG, QWK
     Route: 058
  2. FLONASE [Concomitant]
     Dosage: 0.05% SPR
  3. VITAMIN D3 [Concomitant]
     Dosage: 2000 UNIT, UNK
  4. GLUCO + CHONDROITIN [Concomitant]
     Dosage: 500 COMP
  5. FLAXSEED OIL [Concomitant]
     Dosage: UNK
  6. SELENIUM [Concomitant]
     Dosage: 200 MUG, UNK

REACTIONS (9)
  - Pain [Unknown]
  - Sinus congestion [Unknown]
  - Cough [Unknown]
  - Sneezing [Unknown]
  - Pruritus [Unknown]
  - Decreased activity [Unknown]
  - Discomfort [Unknown]
  - Insomnia [Unknown]
  - Rheumatoid arthritis [Unknown]
